FAERS Safety Report 11047891 (Version 2)
Quarter: 2015Q2

REPORT INFORMATION
  Report Type: Spontaneous
  Country: US (occurrence: US)
  Receive Date: 20150420
  Receipt Date: 20150616
  Transmission Date: 20150821
  Serious: No
  Sender: FDA-Public Use
  Company Number: US-PFIZER INC-2015128014

PATIENT
  Age: 67 Year
  Sex: Female

DRUGS (41)
  1. NYSTATIN. [Concomitant]
     Active Substance: NYSTATIN
     Dosage: UNK UNK, 2X/DAY  (5 ML SWISH AND SWALLOW)
     Dates: start: 20150601
  2. ASPIR 81 [Concomitant]
     Dosage: 81 MG, DAILY
     Route: 048
     Dates: start: 20150504
  3. ESTER-C [Concomitant]
     Active Substance: CALCIUM\VITAMINS
     Dosage: UNK (500-200 MG)
     Route: 048
     Dates: start: 20150504
  4. PRAVASTATIN SODIUM. [Concomitant]
     Active Substance: PRAVASTATIN SODIUM
     Dosage: 20 MG, DAILY (20 MG TABLET TAKE 1 PO QHS)
     Route: 048
     Dates: start: 20150504
  5. PREDNISONE. [Concomitant]
     Active Substance: PREDNISONE
     Dosage: UNK
     Dates: end: 20150601
  6. FEMARA [Concomitant]
     Active Substance: LETROZOLE
     Indication: HORMONE THERAPY
     Dosage: 25 MG, 1X/DAY
     Route: 048
     Dates: start: 20121009
  7. NYSTATIN. [Concomitant]
     Active Substance: NYSTATIN
     Dosage: UNK UNK, 2X/DAY  (5 ML SWISH AND SWALLOW)
     Dates: start: 20150504
  8. ESTER-C [Concomitant]
     Active Substance: CALCIUM\VITAMINS
     Dosage: UNK (500-200 MG)
     Route: 048
     Dates: start: 20150512
  9. MVI [Concomitant]
     Active Substance: VITAMINS
     Dosage: UNK, DAILY
     Route: 048
     Dates: start: 20150601
  10. PRAVASTATIN SODIUM. [Concomitant]
     Active Substance: PRAVASTATIN SODIUM
     Dosage: 20 MG, DAILY (20 MG TABLET TAKE 1 PO QHS)
     Route: 048
     Dates: start: 20150512
  11. PREDNISONE. [Concomitant]
     Active Substance: PREDNISONE
     Dosage: 10 MG, UNK (TAKE 1 PO AS DIRECTED)
     Route: 048
     Dates: start: 20150519
  12. IBRANCE [Suspect]
     Active Substance: PALBOCICLIB
     Indication: BREAST CANCER FEMALE
     Dosage: 125 MG, CYCLIC (ONCE DAILY WITH FOOD FOR 21 DAYS, THEN 7 DAYS OFF)
     Route: 048
     Dates: start: 20150216
  13. NYSTATIN. [Concomitant]
     Active Substance: NYSTATIN
     Indication: MUCOSAL INFLAMMATION
     Dosage: UNK (5 ML SWISH 1/2 SWALLOW)
     Dates: start: 20150409
  14. ASPIR 81 [Concomitant]
     Dosage: 81 MG, DAILY
     Route: 048
     Dates: start: 20150601
  15. POTASSIUM GLUCONATE [Concomitant]
     Active Substance: POTASSIUM GLUCONATE
     Dosage: UNK, DAILY (550 (90) MG TABLET TAKE 1 PO DAILY)
     Route: 048
     Dates: start: 20150512
  16. POTASSIUM GLUCONATE [Concomitant]
     Active Substance: POTASSIUM GLUCONATE
     Dosage: UNK, DAILY (550 (90) MG TABLET TAKE 1 PO DAILY)
     Route: 048
     Dates: start: 20150601
  17. MVI [Concomitant]
     Active Substance: VITAMINS
     Dosage: UNK, DAILY
     Route: 048
     Dates: start: 20150519
  18. GLIPIZIDE XL [Concomitant]
     Active Substance: GLIPIZIDE
     Dosage: 2.5 MG, DAILY
     Route: 048
     Dates: start: 20150601
  19. POTASSIUM GLUCONATE [Concomitant]
     Active Substance: POTASSIUM GLUCONATE
     Dosage: UNK, DAILY (550 (90) MG TABLET TAKE 1 PO DAILY)
     Route: 048
     Dates: start: 20150504
  20. ESTER-C [Concomitant]
     Active Substance: CALCIUM\VITAMINS
     Dosage: UNK (500-200 MG)
     Route: 048
     Dates: start: 20150601
  21. VITAMIN D3 [Concomitant]
     Active Substance: CHOLECALCIFEROL
     Dosage: UNK UNK, DAILY (1000 UNITS TABLET)
     Route: 048
     Dates: start: 20150504
  22. GLIPIZIDE XL [Concomitant]
     Active Substance: GLIPIZIDE
     Dosage: 2.5 MG, DAILY
     Route: 048
     Dates: start: 20150504
  23. NYSTATIN. [Concomitant]
     Active Substance: NYSTATIN
     Dosage: UNK UNK, 2X/DAY  (5 ML SWISH AND SWALLOW)
     Dates: start: 20150512
  24. NYSTATIN. [Concomitant]
     Active Substance: NYSTATIN
     Dosage: UNK UNK, 2X/DAY  (5 ML SWISH AND SWALLOW)
     Dates: start: 20150519
  25. ESTER-C [Concomitant]
     Active Substance: CALCIUM\VITAMINS
     Dosage: UNK (500-200 MG)
     Route: 048
     Dates: start: 20150519
  26. MVI [Concomitant]
     Active Substance: VITAMINS
     Dosage: UNK, DAILY
     Route: 048
     Dates: start: 20150504
  27. ASPIR 81 [Concomitant]
     Dosage: 81 MG, DAILY
     Route: 048
     Dates: start: 20150512
  28. VITAMIN D3 [Concomitant]
     Active Substance: CHOLECALCIFEROL
     Dosage: UNK UNK, DAILY (1000 UNITS TABLET)
     Route: 048
     Dates: start: 20150512
  29. PRAVASTATIN SODIUM. [Concomitant]
     Active Substance: PRAVASTATIN SODIUM
     Dosage: 20 MG, DAILY (20 MG TABLET TAKE 1 PO QHS)
     Route: 048
     Dates: start: 20150519
  30. PRAVASTATIN SODIUM. [Concomitant]
     Active Substance: PRAVASTATIN SODIUM
     Dosage: 20 MG, DAILY (20 MG TABLET TAKE 1 PO QHS)
     Route: 048
     Dates: start: 20150601
  31. IBRANCE [Suspect]
     Active Substance: PALBOCICLIB
     Indication: BREAST CANCER METASTATIC
  32. ASPIR 81 [Concomitant]
     Dosage: 81 MG, DAILY
     Route: 048
     Dates: start: 20150519
  33. VITAMIN D3 [Concomitant]
     Active Substance: CHOLECALCIFEROL
     Dosage: UNK UNK, DAILY (1000 UNITS TABLET)
     Route: 048
     Dates: start: 20150519
  34. MVI [Concomitant]
     Active Substance: VITAMINS
     Dosage: UNK, DAILY
     Route: 048
     Dates: start: 20150512
  35. VITAMIN B COMPLEX [Concomitant]
     Active Substance: CYANOCOBALAMIN\DEXPANTHENOL\NIACINAMIDE\PYRIDOXINE HYDROCHLORIDE\RIBOFLAVIN 5^-PHOSPHATE SODIUM\THIAMINE HYDROCHLORIDE\VITAMIN B COMPLEX
     Dosage: UNK UNK, DAILY
     Route: 048
     Dates: start: 20150601
  36. POTASSIUM GLUCONATE [Concomitant]
     Active Substance: POTASSIUM GLUCONATE
     Dosage: UNK, DAILY (550 (90) MG TABLET TAKE 1 PO DAILY)
     Route: 048
     Dates: start: 20150519
  37. VITAMIN D3 [Concomitant]
     Active Substance: CHOLECALCIFEROL
     Dosage: UNK UNK, DAILY (1000 UNITS TABLET)
     Route: 048
     Dates: start: 20150601
  38. GLIPIZIDE XL [Concomitant]
     Active Substance: GLIPIZIDE
     Dosage: 2.5 MG, DAILY
     Route: 048
     Dates: start: 20150501
  39. GLIPIZIDE XL [Concomitant]
     Active Substance: GLIPIZIDE
     Dosage: 2.5 MG, DAILY
     Route: 048
     Dates: start: 20150519
  40. DIFLUCAN [Concomitant]
     Active Substance: FLUCONAZOLE
     Dosage: UNK
     Route: 048
     Dates: start: 20140812, end: 20150504
  41. FLONASE [Concomitant]
     Active Substance: FLUTICASONE PROPIONATE
     Indication: HYPERSENSITIVITY
     Dosage: 50 ?G, AS NEEDED (50 MCG SPRAY, SUSPENSION, TAKE 1 APPLICATION TOPICAL AS NEEDED)
     Route: 061

REACTIONS (3)
  - Fungal infection [Unknown]
  - White blood cell count decreased [Recovering/Resolving]
  - Oral candidiasis [Recovering/Resolving]

NARRATIVE: CASE EVENT DATE: 20150430
